FAERS Safety Report 16553078 (Version 1)
Quarter: 2019Q3

REPORT INFORMATION
  Report Type: Report from Study
  Country: None (occurrence: US)
  Receive Date: 20190710
  Receipt Date: 20190710
  Transmission Date: 20191004
  Serious: Yes (Death)
  Sender: FDA-Public Use
  Company Number: US-BIOVITRUM-2019US1720

PATIENT
  Sex: Female

DRUGS (1)
  1. KINERET [Suspect]
     Active Substance: ANAKINRA
     Indication: MALIGNANT NEOPLASM OF THORAX
     Route: 058
     Dates: start: 201904

REACTIONS (2)
  - Death [Fatal]
  - Off label use [Unknown]
